FAERS Safety Report 12441865 (Version 1)
Quarter: 2016Q2

REPORT INFORMATION
  Report Type: Spontaneous
  Country: US (occurrence: US)
  Receive Date: 20160607
  Receipt Date: 20160607
  Transmission Date: 20160815
  Serious: Yes (Hospitalization, Other)
  Sender: FDA-Public Use
  Company Number: US-EMD SERONO-7024966

PATIENT
  Sex: Male

DRUGS (4)
  1. REBIF [Suspect]
     Active Substance: INTERFERON BETA-1A
     Indication: RELAPSING-REMITTING MULTIPLE SCLEROSIS
     Route: 058
     Dates: start: 20100921, end: 201603
  2. NITRO PATCH [Concomitant]
     Active Substance: NITROGLYCERIN
     Indication: CARDIAC DISORDER
  3. CARBAMAZEPINE. [Concomitant]
     Active Substance: CARBAMAZEPINE
     Indication: SEIZURE
     Route: 048
  4. ZOCOR [Concomitant]
     Active Substance: SIMVASTATIN
     Indication: LIPIDS INCREASED
     Route: 048

REACTIONS (16)
  - Cerebrovascular accident [Unknown]
  - Loss of consciousness [Unknown]
  - Amnesia [Unknown]
  - Cerebrovascular accident [Not Recovered/Not Resolved]
  - Vision blurred [Unknown]
  - Dyspnoea [Not Recovered/Not Resolved]
  - Hypoaesthesia [Not Recovered/Not Resolved]
  - Decreased activity [Not Recovered/Not Resolved]
  - Cardiac pacemaker insertion [Unknown]
  - Fall [Unknown]
  - Eye pain [Unknown]
  - Asthenia [Unknown]
  - Pyrexia [Unknown]
  - Haemoptysis [Not Recovered/Not Resolved]
  - Anal incontinence [Not Recovered/Not Resolved]
  - Pain [Unknown]

NARRATIVE: CASE EVENT DATE: 2010
